FAERS Safety Report 6132527-9 (Version None)
Quarter: 2009Q1

REPORT INFORMATION
  Report Type: 
  Country: None (occurrence: None)
  Receive Date: 20090325
  Receipt Date: 20090310
  Transmission Date: 20090719
  Serious: Yes (Hospitalization)
  Sender: FDA-Public Use
  Company Number: ES-GENENTECH-279553

PATIENT
  Age: 63 Year
  Sex: Male

DRUGS (2)
  1. AVASTIN [Suspect]
     Indication: LUNG NEOPLASM MALIGNANT
     Dosage: 435 MG, UNK
     Route: 042
     Dates: start: 20090121, end: 20090121
  2. DOCETAXEL [Suspect]
     Indication: LUNG NEOPLASM MALIGNANT
     Dosage: UNK
     Route: 042
     Dates: start: 20090121, end: 20090121

REACTIONS (4)
  - FEBRILE NEUTROPENIA [None]
  - ILEAL PERFORATION [None]
  - RENAL FAILURE ACUTE [None]
  - SEPSIS [None]
